FAERS Safety Report 6308851-3 (Version None)
Quarter: 2009Q3

REPORT INFORMATION
  Report Type: 
  Country: None (occurrence: None)
  Receive Date: 20090813
  Receipt Date: 20081208
  Transmission Date: 20100115
  Serious: No
  Sender: FDA-Public Use
  Company Number: US-ALLERGAN-0815548US

PATIENT
  Sex: Female

DRUGS (1)
  1. COMBIGAN [Suspect]
     Indication: BORDERLINE GLAUCOMA
     Dosage: 1 GTT, BID LEFT EYE
     Route: 047

REACTIONS (2)
  - EYE PAIN [None]
  - VISION BLURRED [None]
